FAERS Safety Report 15052760 (Version 1)
Quarter: 2018Q2

REPORT INFORMATION
  Report Type: Spontaneous
  Country: DE (occurrence: DE)
  Receive Date: 20180622
  Receipt Date: 20180622
  Transmission Date: 20180711
  Serious: Yes (Hospitalization, Other)
  Sender: FDA-Public Use
  Company Number: PHHY2018DE023851

PATIENT
  Sex: Female

DRUGS (1)
  1. GILENYA [Suspect]
     Active Substance: FINGOLIMOD HYDROCHLORIDE
     Indication: PRODUCT USED FOR UNKNOWN INDICATION
     Dosage: UNK UNK, QOD (EVERY OTHER DAY)
     Route: 065

REACTIONS (5)
  - Multiple sclerosis relapse [Unknown]
  - Anaesthesia [Unknown]
  - Lymphocyte count decreased [Unknown]
  - Infection susceptibility increased [Unknown]
  - Inappropriate schedule of drug administration [Unknown]
